FAERS Safety Report 16113361 (Version 2)
Quarter: 2019Q2

REPORT INFORMATION
  Report Type: Spontaneous
  Country: US (occurrence: US)
  Receive Date: 20190325
  Receipt Date: 20190425
  Transmission Date: 20190711
  Serious: No
  Sender: FDA-Public Use
  Company Number: US-PFIZER INC-2019123029

PATIENT
  Age: 72 Year
  Sex: Female

DRUGS (1)
  1. EUCRISA [Suspect]
     Active Substance: CRISABOROLE
     Dosage: UNK, 2X/DAY (APPLY TO AFFECTED AREAS TWICE A DAY)

REACTIONS (4)
  - Erythema [Unknown]
  - Skin burning sensation [Unknown]
  - Swelling [Unknown]
  - Drug hypersensitivity [Unknown]
